FAERS Safety Report 24909098 (Version 2)
Quarter: 2025Q2

REPORT INFORMATION
  Report Type: Spontaneous
  Country: PT (occurrence: PT)
  Receive Date: 20250131
  Receipt Date: 20250409
  Transmission Date: 20250717
  Serious: Yes (Other)
  Sender: ORGANON
  Company Number: None

PATIENT
  Age: 29 Year
  Sex: Female

DRUGS (1)
  1. ETONOGESTREL [Suspect]
     Active Substance: ETONOGESTREL
     Route: 058
     Dates: start: 20240812, end: 20241218

REACTIONS (2)
  - Abnormal uterine bleeding [Recovering/Resolving]
  - Product use issue [Unknown]

NARRATIVE: CASE EVENT DATE: 20240830
